FAERS Safety Report 5861646-7 (Version None)
Quarter: 2008Q3

REPORT INFORMATION
  Report Type: 
  Country: None (occurrence: None)
  Receive Date: 20080827
  Receipt Date: 20080606
  Transmission Date: 20090109
  Serious: No
  Sender: FDA-Public Use
  Company Number: US-ABBOTT-08P-163-0455433-00

PATIENT
  Sex: Female

DRUGS (3)
  1. COATED PDS [Suspect]
     Indication: BLOOD TRIGLYCERIDES INCREASED
     Dosage: UNCOATED
     Route: 048
     Dates: start: 20080604, end: 20080606
  2. COATED PDS [Suspect]
     Dosage: COATED
     Route: 048
     Dates: start: 20080501, end: 20080604
  3. ERGOCALCIFEROL [Concomitant]
     Indication: VITAMIN SUPPLEMENTATION
     Route: 048

REACTIONS (3)
  - FLUSHING [None]
  - HEART RATE INCREASED [None]
  - OEDEMA PERIPHERAL [None]
